FAERS Safety Report 17018023 (Version 1)
Quarter: 2019Q4

REPORT INFORMATION
  Report Type: Spontaneous
  Country: US (occurrence: US)
  Receive Date: 20191111
  Receipt Date: 20191111
  Transmission Date: 20200122
  Serious: Yes (Other)
  Sender: FDA-Public Use
  Company Number: US-ELI_LILLY_AND_COMPANY-US201910015959

PATIENT
  Age: 62 Year
  Sex: Male

DRUGS (6)
  1. VIAGRA [Suspect]
     Active Substance: SILDENAFIL CITRATE
     Indication: PRODUCT USED FOR UNKNOWN INDICATION
     Dosage: 100 MG, THREE TIMES A WEEK
     Route: 065
     Dates: start: 200410, end: 201407
  2. LEVITRA [Suspect]
     Active Substance: VARDENAFIL HYDROCHLORIDE
     Indication: ERECTILE DYSFUNCTION
     Dosage: 20 MG, THREE TIMES A WEEK
     Route: 065
     Dates: start: 20041130, end: 200412
  3. VIAGRA [Suspect]
     Active Substance: SILDENAFIL CITRATE
     Dosage: 100 MG, THREE TIMES A WEEK
     Route: 065
     Dates: start: 20150218, end: 201701
  4. TAMULOSIN [Suspect]
     Active Substance: TAMSULOSIN
     Indication: PROSTATIC DISORDER
     Dosage: 0.4 MG, DAILY
     Route: 065
     Dates: start: 20151127, end: 201612
  5. LEVITRA [Suspect]
     Active Substance: VARDENAFIL HYDROCHLORIDE
     Dosage: 20 MG, THREE TIMES A WEEK
     Route: 065
     Dates: start: 20080331, end: 201009
  6. CIALIS [Suspect]
     Active Substance: TADALAFIL
     Indication: PRODUCT USED FOR UNKNOWN INDICATION
     Dosage: 20 MG, THREE TIMES A WEEK
     Route: 065
     Dates: start: 20100820, end: 201009

REACTIONS (1)
  - Malignant melanoma [Unknown]

NARRATIVE: CASE EVENT DATE: 201411
